FAERS Safety Report 26143334 (Version 1)
Quarter: 2025Q4

REPORT INFORMATION
  Report Type: Spontaneous
  Country: EU (occurrence: EU)
  Receive Date: 20251211
  Receipt Date: 20251211
  Transmission Date: 20260118
  Serious: Yes (Other)
  Sender: BIOCODEX
  Company Number: EU-BIOCODEX2-2025001929

PATIENT
  Age: 5 Year

DRUGS (2)
  1. DIACOMIT [Suspect]
     Active Substance: STIRIPENTOL
     Indication: Status epilepticus
     Dosage: 50 MG/KG/DAY
  2. DIACOMIT [Suspect]
     Active Substance: STIRIPENTOL

REACTIONS (2)
  - Off label use [Unknown]
  - Drug ineffective for unapproved indication [Unknown]
